FAERS Safety Report 9397024 (Version 1)
Quarter: 2013Q3

REPORT INFORMATION
  Report Type: Spontaneous
  Country: SG (occurrence: SG)
  Receive Date: 20130712
  Receipt Date: 20130712
  Transmission Date: 20140515
  Serious: Yes (Life-Threatening, Other)
  Sender: FDA-Public Use
  Company Number: SG-AMGEN-SGPSP2013048000

PATIENT
  Age: 23 Year
  Sex: Male

DRUGS (5)
  1. NEUPOGEN [Suspect]
     Indication: NEUTROPENIA
     Dosage: 300 MUG, DAILY (1 IN 1 DAY)
     Route: 058
     Dates: start: 20130624, end: 20130703
  2. DORIBAX                            /05512401/ [Concomitant]
     Dosage: 500 MG, 1 IN 8 HOURS
     Route: 042
     Dates: start: 20130624
  3. AMIKACIN [Concomitant]
     Dosage: 500 MG, 1 IN 12 HOURS
     Route: 042
     Dates: start: 20130624, end: 20130628
  4. IDARUBICIN                         /00830302/ [Concomitant]
     Dosage: 20 MG, 1 IN1 DAY
     Route: 042
     Dates: start: 20130410, end: 20130612
  5. CYTARABINE [Concomitant]
     Dosage: 190 MG, 1 IN 1 DAY
     Route: 042
     Dates: start: 20130504, end: 20130615

REACTIONS (1)
  - Drug ineffective [Not Recovered/Not Resolved]
